FAERS Safety Report 6651396-1 (Version None)
Quarter: 2010Q1

REPORT INFORMATION
  Report Type: 
  Country: None (occurrence: None)
  Receive Date: 20100325
  Receipt Date: 20100313
  Transmission Date: 20100710
  Serious: Yes (Other)
  Sender: FDA-Public Use
  Company Number: US-JNJFOC-20090600353

PATIENT
  Sex: Male

DRUGS (4)
  1. LEVAQUIN [Suspect]
     Indication: PNEUMONIA
     Route: 048
  2. LEVAQUIN [Suspect]
     Indication: BRONCHITIS
     Route: 048
  3. LEVAQUIN [Suspect]
     Indication: CHRONIC OBSTRUCTIVE PULMONARY DISEASE
     Route: 048
  4. AZITHROMYCIN [Suspect]
     Indication: PNEUMONIA
     Dosage: 500-750
     Route: 065

REACTIONS (4)
  - ABASIA [None]
  - MUSCLE RUPTURE [None]
  - MUSCULAR WEAKNESS [None]
  - TENDON RUPTURE [None]
